FAERS Safety Report 5663031-X (Version None)
Quarter: 2008Q1

REPORT INFORMATION
  Report Type: 
  Country: None (occurrence: None)
  Receive Date: 20080313
  Receipt Date: 20080303
  Transmission Date: 20080703
  Serious: Yes (Other)
  Sender: FDA-Public Use
  Company Number: US-PFIZER INC-2008020439

PATIENT
  Sex: Female

DRUGS (3)
  1. LIPITOR [Suspect]
     Indication: BLOOD CHOLESTEROL INCREASED
  2. ENALAPRIL MALEATE [Concomitant]
  3. ALL OTHER THERAPEUTIC PRODUCTS [Concomitant]

REACTIONS (3)
  - ABDOMINAL DISTENSION [None]
  - CARDIAC PACEMAKER INSERTION [None]
  - DIARRHOEA [None]
